FAERS Safety Report 6070159-1 (Version None)
Quarter: 2009Q1

REPORT INFORMATION
  Report Type: 
  Country: None (occurrence: None)
  Receive Date: 20090204
  Receipt Date: 20090126
  Transmission Date: 20090719
  Serious: Yes (Other)
  Sender: FDA-Public Use
  Company Number: 2009JP000444

PATIENT
  Age: 18 Year
  Sex: Male

DRUGS (6)
  1. PROGRAF [Suspect]
     Indication: CORD BLOOD TRANSPLANT THERAPY
  2. ETOPOSIDE [Concomitant]
  3. CYCLOPHOSPHAMIDE [Concomitant]
  4. METHOTREXATE [Concomitant]
  5. PREDNISOLONE [Concomitant]
  6. VANCOMYCIN [Concomitant]

REACTIONS (6)
  - ABDOMINAL PAIN UPPER [None]
  - MULTIPLE-DRUG RESISTANCE [None]
  - PNEUMONIA STAPHYLOCOCCAL [None]
  - PNEUMOTHORAX [None]
  - PSEUDOMONAS INFECTION [None]
  - THROMBOTIC MICROANGIOPATHY [None]
